FAERS Safety Report 4905981-5 (Version None)
Quarter: 2006Q1

REPORT INFORMATION
  Report Type: 
  Country: None (occurrence: None)
  Receive Date: 20060206
  Receipt Date: 20060124
  Transmission Date: 20060701
  Serious: Yes (Other)
  Sender: FDA-Public Use
  Company Number: 2005162355

PATIENT
  Age: 50 Year
  Sex: Female
  Weight: 56.6996 kg

DRUGS (6)
  1. ZOLOFT [Suspect]
     Indication: MAJOR DEPRESSION
     Dosage: 50  MG (50 MG, 1 IN 1 D), ORAL
     Route: 048
     Dates: start: 19930101
  2. XANAX [Suspect]
     Indication: TENSION
  3. REMERON [Suspect]
     Indication: DEPRESSION
     Dates: end: 20051101
  4. ALL OTHER THERAPEUTIC PRODUCTS (ALL OTHER THERAPEUTIC PRODUCTS) [Suspect]
     Indication: ILL-DEFINED DISORDER
  5. LIPITOR [Concomitant]
  6. INDERAL [Concomitant]

REACTIONS (7)
  - BRUXISM [None]
  - DRUG DOSE OMISSION [None]
  - DRUG INEFFECTIVE [None]
  - DYSPNOEA [None]
  - EYE DISORDER [None]
  - TENSION [None]
  - VAGAL NERVE STIMULATOR IMPLANTATION [None]
